FAERS Safety Report 8812843 (Version 1)
Quarter: 2012Q4

REPORT INFORMATION
  Report Type: 
  Country: US (occurrence: US)
  Receive Date: 20120927
  Receipt Date: 20120927
  Transmission Date: 20130627
  Serious: Yes (Hospitalization)
  Sender: FDA-Public Use
  Company Number: US-AMGEN-USASP2012038732

PATIENT
  Age: 87 Year
  Sex: Male

DRUGS (1)
  1. XGEVA [Suspect]
     Indication: PROPHYLAXIS
     Dosage: 120 mg, UNK
     Dates: start: 2012, end: 2012

REACTIONS (1)
  - Hypocalcaemia [Not Recovered/Not Resolved]
